FAERS Safety Report 7214625-1 (Version None)
Quarter: 2011Q1

REPORT INFORMATION
  Report Type: 
  Country: None (occurrence: None)
  Receive Date: 20110105
  Receipt Date: 20110105
  Transmission Date: 20110831
  Serious: Yes (Life-Threatening, Hospitalization)
  Sender: FDA-Public Use
  Company Number: None

PATIENT
  Age: 53 Year
  Sex: Female
  Weight: 108.4097 kg

DRUGS (1)
  1. SYMBICORT [Suspect]
     Indication: CHRONIC OBSTRUCTIVE PULMONARY DISEASE
     Dosage: ONE PUFF TWICE DAILY INHAL
     Route: 055
     Dates: start: 20101127, end: 20101227

REACTIONS (7)
  - INCREASED VISCOSITY OF BRONCHIAL SECRETION [None]
  - DYSPNOEA [None]
  - HEART RATE IRREGULAR [None]
  - BACTERAEMIA [None]
  - BLOOD PRESSURE INCREASED [None]
  - SPUTUM DISCOLOURED [None]
  - RENAL IMPAIRMENT [None]
